APPROVED DRUG PRODUCT: HYCAMTIN
Active Ingredient: TOPOTECAN HYDROCHLORIDE
Strength: EQ 0.25MG BASE
Dosage Form/Route: CAPSULE;ORAL
Application: N020981 | Product #001
Applicant: SANDOZ INC
Approved: Oct 11, 2007 | RLD: Yes | RS: No | Type: RX